FAERS Safety Report 11687669 (Version 2)
Quarter: 2015Q4

REPORT INFORMATION
  Report Type: Spontaneous
  Country: US (occurrence: US)
  Receive Date: 20151030
  Receipt Date: 20151110
  Transmission Date: 20160304
  Serious: Yes (Hospitalization)
  Sender: FDA-Public Use
  Company Number: US-CREALTA PHARMACEUTICALS-2015S1000054

PATIENT
  Age: 71 Year
  Sex: Female
  Weight: 67.19 kg

DRUGS (8)
  1. BENDARYL [Concomitant]
     Route: 048
     Dates: start: 20151020, end: 20151020
  2. TYLENOL [Concomitant]
     Active Substance: ACETAMINOPHEN
     Indication: ALLERGY PROPHYLAXIS
     Route: 048
     Dates: start: 20150928, end: 20150928
  3. TYLENOL [Concomitant]
     Active Substance: ACETAMINOPHEN
     Route: 048
     Dates: start: 20151020, end: 20151020
  4. BENDARYL [Concomitant]
     Indication: ALLERGY PROPHYLAXIS
     Route: 048
     Dates: start: 20150928, end: 20150928
  5. SOLU-MEDROL [Concomitant]
     Active Substance: METHYLPREDNISOLONE SODIUM SUCCINATE
     Route: 042
     Dates: start: 20151020, end: 20151020
  6. KRYSTEXXA [Suspect]
     Active Substance: PEGLOTICASE
     Indication: GOUT
     Route: 042
     Dates: start: 20150928, end: 20150928
  7. KRYSTEXXA [Suspect]
     Active Substance: PEGLOTICASE
     Route: 042
     Dates: start: 20151020, end: 20151020
  8. SOLU-MEDROL [Concomitant]
     Active Substance: METHYLPREDNISOLONE SODIUM SUCCINATE
     Indication: ALLERGY PROPHYLAXIS
     Route: 042
     Dates: start: 20150928, end: 20150928

REACTIONS (3)
  - Anaphylactic reaction [Recovered/Resolved]
  - Malaise [None]
  - Drug dose omission [None]

NARRATIVE: CASE EVENT DATE: 20151020
